FAERS Safety Report 5753172-0 (Version None)
Quarter: 2008Q2

REPORT INFORMATION
  Report Type: 
  Country: None (occurrence: None)
  Receive Date: 20080530
  Receipt Date: 20080522
  Transmission Date: 20081010
  Serious: Yes (Hospitalization)
  Sender: FDA-Public Use
  Company Number: US-BRISTOL-MYERS SQUIBB COMPANY-14113781

PATIENT
  Age: 57 Year
  Sex: Female
  Weight: 124 kg

DRUGS (16)
  1. IXEMPRA FOR INJ [Suspect]
     Indication: BREAST CANCER METASTATIC
     Dosage: 72 IV MG OVER 3(UNIT NOT CLEAR) EVERY 3 WEEKS. ALSO TAKEN ON 28-FEB,20-MAR,10-APR + 01-MAY-2008.
     Route: 042
     Dates: start: 20080131
  2. XELODA [Suspect]
  3. AMARYL [Concomitant]
  4. AVANDIA [Concomitant]
  5. LIPITOR [Concomitant]
  6. MONOPRIL [Concomitant]
  7. KLOR-CON [Concomitant]
  8. GLUCOPHAGE [Concomitant]
  9. LASIX [Concomitant]
  10. PRILOSEC [Concomitant]
     Dosage: 20 DOSAGE FORM = 20 (UNITS NOT SPECIFIED).
  11. LANTUS [Concomitant]
  12. FLOVENT [Concomitant]
  13. VITAMIN CAP [Concomitant]
  14. ONDANSETRON HCL [Concomitant]
     Indication: PREMEDICATION
  15. DEXAMETHASONE TAB [Concomitant]
     Indication: PREMEDICATION
  16. DOLASETRON MESILATE [Concomitant]

REACTIONS (4)
  - DIARRHOEA [None]
  - FEBRILE NEUTROPENIA [None]
  - HYPERTENSION [None]
  - RESPIRATORY TRACT INFECTION [None]
